FAERS Safety Report 17742843 (Version 2)
Quarter: 2022Q2

REPORT INFORMATION
  Report Type: Spontaneous
  Country: GR (occurrence: GR)
  Receive Date: 20200504
  Receipt Date: 20220511
  Transmission Date: 20220721
  Serious: Yes (Hospitalization, Other)
  Sender: FDA-Public Use
  Company Number: GR-AMGEN-GRCSP2020052807

PATIENT
  Age: 61 Year
  Sex: Female

DRUGS (3)
  1. TRASTUZUMAB [Suspect]
     Active Substance: TRASTUZUMAB
     Indication: Breast cancer female
     Dosage: UNK
     Route: 065
  2. LEFLUNOMIDE [Suspect]
     Active Substance: LEFLUNOMIDE
     Indication: Rheumatoid arthritis
     Dosage: UNK
  3. METHYLPREDNISOLONE [Suspect]
     Active Substance: METHYLPREDNISOLONE
     Indication: Rheumatoid arthritis
     Dosage: UNK

REACTIONS (11)
  - Intervertebral discitis [Recovered/Resolved]
  - Streptococcus test positive [Recovered/Resolved]
  - Paraspinal abscess [Recovered/Resolved]
  - Psoas abscess [Recovered/Resolved]
  - Candida test positive [Recovered/Resolved]
  - Spinal cord abscess [Recovered/Resolved]
  - Device related infection [Recovered/Resolved]
  - Candida infection [Recovered/Resolved]
  - Beta haemolytic streptococcal infection [Recovered/Resolved]
  - Candida osteomyelitis [Recovered/Resolved]
  - Systemic candida [Recovered/Resolved]
